FAERS Safety Report 17858469 (Version 2)
Quarter: 2020Q2

REPORT INFORMATION
  Report Type: Report from Study
  Country: None (occurrence: US)
  Receive Date: 20200604
  Receipt Date: 20200605
  Transmission Date: 20200714
  Serious: No
  Sender: FDA-Public Use
  Company Number: US-US WORLDMEDS, LLC-USW201909-001698

PATIENT
  Age: 47 Year
  Sex: Female
  Weight: 52.16 kg

DRUGS (3)
  1. APOKYN [Suspect]
     Active Substance: APOMORPHINE HYDROCHLORIDE
     Route: 058
  2. APOKYN [Suspect]
     Active Substance: APOMORPHINE HYDROCHLORIDE
     Route: 058
     Dates: start: 20190903
  3. CARBIDOPA LEVODOPA [Concomitant]
     Active Substance: CARBIDOPA\LEVODOPA

REACTIONS (5)
  - Dyspnoea [Recovered/Resolved]
  - Nervousness [Recovered/Resolved]
  - Panic reaction [Recovered/Resolved]
  - Nasal congestion [Recovered/Resolved]
  - Feeling abnormal [Recovered/Resolved]

NARRATIVE: CASE EVENT DATE: 20190904
